FAERS Safety Report 7427828-8 (Version None)
Quarter: 2011Q2

REPORT INFORMATION
  Report Type: 
  Country: None (occurrence: None)
  Receive Date: 20110421
  Receipt Date: 20110411
  Transmission Date: 20111010
  Serious: Yes (Death, Hospitalization)
  Sender: FDA-Public Use
  Company Number: FR-EISAI INC-E3810-04604-SPO-FR

PATIENT
  Sex: Female

DRUGS (11)
  1. METOJECT [Suspect]
     Indication: SICCA SYNDROME
     Dosage: 20 MG/ML
     Route: 058
     Dates: start: 20110119, end: 20110119
  2. ELUDRIL [Suspect]
  3. METOJECT [Suspect]
     Dosage: 10 MG/ML
     Route: 058
     Dates: start: 20101021
  4. FORTZAAR [Suspect]
     Route: 048
     Dates: end: 20110210
  5. METOJECT [Suspect]
     Route: 058
     Dates: start: 20070201
  6. CRESTOR [Suspect]
     Indication: HYPERCHOLESTEROLAEMIA
     Route: 048
     Dates: end: 20110208
  7. KARDEGIC [Suspect]
     Route: 048
     Dates: end: 20110210
  8. ISOPTIN [Suspect]
     Route: 048
     Dates: end: 20110210
  9. STILNOX [Suspect]
     Route: 048
  10. CORTANCYL [Suspect]
     Route: 048
     Dates: end: 20110210
  11. PARIET (RABEPRAZOLE) [Suspect]
     Route: 048
     Dates: end: 20110210

REACTIONS (1)
  - INTERSTITIAL LUNG DISEASE [None]
